FAERS Safety Report 9610023 (Version 1)
Quarter: 2013Q4

REPORT INFORMATION
  Report Type: Spontaneous
  Country: US (occurrence: US)
  Receive Date: 20131009
  Receipt Date: 20131009
  Transmission Date: 20140711
  Serious: Yes (Other)
  Sender: FDA-Public Use
  Company Number: US-BAYER-2013-121147

PATIENT
  Age: 29 Year
  Sex: Female

DRUGS (1)
  1. GADAVIST [Suspect]
     Indication: SCAN
     Dosage: UNK, ONCE
     Dates: start: 20131004, end: 20131004

REACTIONS (5)
  - Hypoaesthesia oral [None]
  - Nausea [None]
  - Feeling abnormal [None]
  - Pruritus [None]
  - Rash [None]
